FAERS Safety Report 10495622 (Version 1)
Quarter: 2014Q3

REPORT INFORMATION
  Report Type: Spontaneous
  Country: US (occurrence: None)
  Receive Date: 20140815
  Receipt Date: 20140815
  Transmission Date: 20150326
  Serious: Yes (Other)
  Sender: FDA-Public Use
  Company Number: ADR-2013-01968

PATIENT
  Sex: Male

DRUGS (2)
  1. BACLOFEN ORAL [Suspect]
     Active Substance: BACLOFEN
  2. BACLOFEN INTRATHECAL [Suspect]
     Active Substance: BACLOFEN
     Indication: MUSCLE SPASTICITY

REACTIONS (7)
  - Unevaluable event [None]
  - Confusional state [None]
  - Pain in extremity [None]
  - Convulsion [None]
  - Overdose [None]
  - Adverse event [None]
  - Underdose [None]
